FAERS Safety Report 8987061 (Version 1)
Quarter: 2012Q4

REPORT INFORMATION
  Report Type: Spontaneous
  Country: US (occurrence: None)
  Receive Date: 20121217
  Receipt Date: 20121217
  Transmission Date: 20130627
  Serious: Yes (Other)
  Sender: FDA-Public Use
  Company Number: DKLU1087055

PATIENT
  Sex: Female

DRUGS (1)
  1. SABRIL (TABLET) (SABRIL) (VIGABATRIN) (500 MG, TABLET) [Suspect]
     Indication: PRODUCT USED FOR UNKNOWN INDICATION

REACTIONS (1)
  - Retinal disorder [None]
